FAERS Safety Report 15017046 (Version 1)
Quarter: 2018Q2

REPORT INFORMATION
  Report Type: Spontaneous
  Country: US (occurrence: US)
  Receive Date: 20180531
  Receipt Date: 20180531
  Transmission Date: 20180711
  Serious: Yes (Disabling)
  Sender: FDA-Public Use
  Company Number: None

PATIENT
  Age: 70 Year
  Sex: Male
  Weight: 77.4 kg

DRUGS (6)
  1. LISINOPRIL. [Concomitant]
     Active Substance: LISINOPRIL
  2. MSM [Concomitant]
     Active Substance: DIMETHYL SULFONE
  3. SYNTHROID [Concomitant]
     Active Substance: LEVOTHYROXINE SODIUM
  4. VITIAMIN D [Concomitant]
  5. ACTEMRA [Suspect]
     Active Substance: TOCILIZUMAB
     Indication: RHEUMATOID ARTHRITIS
     Route: 042
     Dates: start: 20170121, end: 20171021
  6. IBUPROFEN. [Concomitant]
     Active Substance: IBUPROFEN

REACTIONS (7)
  - Diarrhoea [None]
  - Abdominal pain upper [None]
  - Diverticulum [None]
  - Scrotal swelling [None]
  - Genital lesion [None]
  - Ulcer [None]
  - Gastrointestinal pain [None]

NARRATIVE: CASE EVENT DATE: 20180130
